FAERS Safety Report 7921540-4 (Version None)
Quarter: 2011Q4

REPORT INFORMATION
  Report Type: 
  Country: None (occurrence: None)
  Receive Date: 20111117
  Receipt Date: 20111109
  Transmission Date: 20120403
  Serious: Yes (Other)
  Sender: FDA-Public Use
  Company Number: US-US-EMD SERONO, INC.-7095140

PATIENT
  Sex: Female

DRUGS (1)
  1. REBIF [Suspect]
     Indication: MULTIPLE SCLEROSIS
     Route: 058
     Dates: start: 20100602

REACTIONS (6)
  - HYPERTENSION [None]
  - NASOPHARYNGITIS [None]
  - GAIT DISTURBANCE [None]
  - CARDIAC DISORDER [None]
  - INJECTION SITE ULCER [None]
  - VERTIGO [None]
